FAERS Safety Report 22160440 (Version 3)
Quarter: 2023Q2

REPORT INFORMATION
  Report Type: Report from Study
  Country: US (occurrence: US)
  Receive Date: 20230331
  Receipt Date: 20230419
  Transmission Date: 20230721
  Serious: Yes (Hospitalization)
  Sender: FDA-Public Use
  Company Number: US-G1 THERAPEUTICS-2023G1US0000065

PATIENT

DRUGS (35)
  1. TRILACICLIB [Suspect]
     Active Substance: TRILACICLIB
     Indication: Myelosuppression
     Dosage: 468 MG; 240 MG/M2 ON DAY 1 AND 8 OF EACH CYCLE
     Route: 042
     Dates: start: 20221003, end: 20230301
  2. TRILACICLIB [Suspect]
     Active Substance: TRILACICLIB
     Dosage: 468 MG; 240 MG/M2 ON DAY 1 AND 8 OF EACH CYCLE
     Route: 042
     Dates: start: 20230329
  3. SACITUZUMAB GOVITECAN-HZIY [Suspect]
     Active Substance: SACITUZUMAB GOVITECAN-HZIY
     Indication: Triple negative breast cancer
     Dosage: 788 MG; 10 MG/KG ON DAY 1 AND 8 OF EACH CYCLE
     Route: 042
     Dates: start: 20221003, end: 20230301
  4. SACITUZUMAB GOVITECAN-HZIY [Suspect]
     Active Substance: SACITUZUMAB GOVITECAN-HZIY
     Dosage: 788 MG; 10 MG/KG ON DAY 1 AND 8 OF EACH CYCLE
     Route: 042
     Dates: start: 20230329
  5. CALCIUM CARBONATE\CHOLECALCIFEROL [Concomitant]
     Active Substance: CALCIUM CARBONATE\CHOLECALCIFEROL
     Indication: Nutritional supplementation
     Dosage: 400-133 MG, QD
     Route: 048
     Dates: start: 2000
  6. VITAMIN B COMPLEX [Concomitant]
     Active Substance: CYANOCOBALAMIN\DEXPANTHENOL\NIACINAMIDE\PYRIDOXINE HYDROCHLORIDE\RIBOFLAVIN 5^-PHOSPHATE SODIUM\THIA
     Indication: Nutritional supplementation
     Dosage: 400 MG, QD
     Route: 048
     Dates: start: 2000
  7. VITAMIN D3 [Concomitant]
     Active Substance: CHOLECALCIFEROL
     Indication: Nutritional supplementation
     Dosage: 5000 [IU], QD
     Route: 048
     Dates: start: 2000
  8. FOLIC ACID [Concomitant]
     Active Substance: FOLIC ACID
     Indication: Deep vein thrombosis
     Dosage: 1 MG, QD
     Route: 048
     Dates: start: 2000
  9. LOPRESSOR [Concomitant]
     Active Substance: METOPROLOL TARTRATE
     Indication: Hypertension
     Dosage: 25 MG, BID
     Route: 048
     Dates: start: 2000
  10. OLOPATADINA [OLOPATADINE] [Concomitant]
     Indication: Dry eye
     Dosage: 1 DROP, PRN
     Route: 047
     Dates: start: 20200101
  11. SYSTANE (HYPROMELLOSE 2910 (4000 MPA.S)) [Concomitant]
     Active Substance: HYPROMELLOSE 2910 (4000 MPA.S)
     Indication: Dry eye
     Dosage: 1 DROP, PRN
     Route: 047
     Dates: start: 20190619
  12. PEPPERMINT OIL [Concomitant]
     Active Substance: PEPPERMINT OIL
     Indication: Diverticulum
     Dosage: 2 CAPSULES, BID
     Route: 048
     Dates: start: 20200810
  13. ONDANSETRON [Concomitant]
     Active Substance: ONDANSETRON
     Indication: Nausea
     Dosage: 8 MG, PRN
     Route: 048
     Dates: start: 20190412
  14. ALIGN [Concomitant]
     Active Substance: BIFIDOBACTERIUM LONGUM SUBSP. INFANTIS
     Indication: Diverticulum
     Dosage: 4 MG, QD
     Route: 048
     Dates: start: 20210111
  15. FLUTICASONE [Concomitant]
     Active Substance: FLUTICASONE
     Indication: Seasonal allergy
     Dosage: 1 SPRAY, QD
     Route: 055
     Dates: start: 20200325
  16. CHLORPHENIRAMINE MALEATE [Concomitant]
     Active Substance: CHLORPHENIRAMINE MALEATE
     Indication: Seasonal allergy
     Dosage: 4 MG, QD
     Route: 048
     Dates: start: 20200506
  17. LORAZEPAM [Concomitant]
     Active Substance: LORAZEPAM
     Indication: Nausea
     Dosage: 0.5 MG, PRN
     Route: 048
     Dates: start: 20190412
  18. VITAMIN B12 [Concomitant]
     Active Substance: CYANOCOBALAMIN
     Indication: Vitamin B12 deficiency
     Dosage: 1000 UG; WEEKLY FOR 4 WEEKS FOLLOWED BY MONTHLY INJECTIONS
     Route: 030
     Dates: start: 20220926, end: 20221017
  19. VITAMIN B12 [Concomitant]
     Active Substance: CYANOCOBALAMIN
     Dosage: 1000 UG; QM X4
     Route: 030
     Dates: start: 20221117
  20. VITAMIN B12 [Concomitant]
     Active Substance: CYANOCOBALAMIN
     Dosage: 5000 UG, QD
     Route: 048
     Dates: start: 20220824
  21. PALONOSETRON [Concomitant]
     Active Substance: PALONOSETRON
     Indication: Prophylaxis of nausea and vomiting
     Dosage: 0.25 MG; EVERY CYCLE
     Route: 042
     Dates: start: 20221003
  22. DEXAMETHASONE [Concomitant]
     Active Substance: DEXAMETHASONE
     Indication: Allergy prophylaxis
     Dosage: 10 MG; EVERY CYCLE
     Route: 042
     Dates: start: 20221003
  23. FOSAPREPITANT [Concomitant]
     Active Substance: FOSAPREPITANT
     Indication: Prophylaxis of nausea and vomiting
     Dosage: 150 MG; EVERY CYCLE
     Route: 042
     Dates: start: 20221003
  24. ACETAMINOPHEN [Concomitant]
     Active Substance: ACETAMINOPHEN
     Indication: Allergy prophylaxis
     Dosage: 650 MG; EVERY CYCLE
     Route: 048
     Dates: start: 20221003
  25. DIPHENHYDRAMINE [Concomitant]
     Active Substance: DIPHENHYDRAMINE
     Indication: Allergy prophylaxis
     Dosage: 25 MG; EVERY CYCLE
     Route: 042
     Dates: start: 20221003
  26. DIPHENHYDRAMINE [Concomitant]
     Active Substance: DIPHENHYDRAMINE
     Indication: Pruritus
     Dosage: 25 MG, PRN
     Route: 048
     Dates: start: 20221016
  27. FAMOTIDINE [Concomitant]
     Active Substance: FAMOTIDINE
     Indication: Allergy prophylaxis
     Dosage: 20 MG; EVERY CYCLE
     Route: 042
     Dates: start: 20221003
  28. PURE BAKING SODA [Concomitant]
     Active Substance: SODIUM BICARBONATE
     Indication: Pharyngitis
     Dosage: 0.5 - 1 TSP/8 OZ WATER, TID
     Route: 048
     Dates: start: 20221006
  29. SENNOSIDES [Concomitant]
     Active Substance: SENNOSIDES
     Indication: Constipation
     Dosage: 2 TABLET, PRN
     Route: 048
     Dates: start: 20221006
  30. CLONIDINE [Concomitant]
     Active Substance: CLONIDINE
     Indication: Hypertension
     Dosage: 0.1 MG, PRN
     Route: 048
     Dates: start: 20221019
  31. SALT [Concomitant]
     Active Substance: SODIUM CHLORIDE
     Indication: Pharyngitis
     Dosage: 0.5 - 1 TSP, TID
     Route: 048
     Dates: start: 20221006
  32. ONDANSETRON HYDROCHLORIDE [Concomitant]
     Active Substance: ONDANSETRON HYDROCHLORIDE
     Indication: Nausea
     Dosage: 4 MG, PRN
     Route: 042
     Dates: start: 20221009
  33. ELIQUIS [Concomitant]
     Active Substance: APIXABAN
     Indication: Deep vein thrombosis
     Dosage: 5 MG, BID
     Route: 048
     Dates: start: 20230109
  34. AMIODARONE [Concomitant]
     Active Substance: AMIODARONE
     Indication: Atrial fibrillation
     Dosage: 200 MG, QD
     Route: 048
     Dates: start: 20230121, end: 20230306
  35. GLYCERIN [Concomitant]
     Active Substance: GLYCERIN
     Indication: Dry mouth
     Dosage: 1 APPLICATION, PRN
     Route: 002
     Dates: start: 20230222

REACTIONS (2)
  - Dizziness [Recovered/Resolved]
  - Gait disturbance [Recovered/Resolved]

NARRATIVE: CASE EVENT DATE: 20230321
